FAERS Safety Report 17829141 (Version 1)
Quarter: 2020Q2

REPORT INFORMATION
  Report Type: Spontaneous
  Country: US (occurrence: US)
  Receive Date: 20200527
  Receipt Date: 20200527
  Transmission Date: 20200714
  Serious: No
  Sender: FDA-Public Use
  Company Number: US-UCBSA-2019019958

PATIENT
  Sex: Female

DRUGS (9)
  1. SERTRALINE HYDROCHLORIDE. [Concomitant]
     Active Substance: SERTRALINE HYDROCHLORIDE
  2. PREDNISONE. [Concomitant]
     Active Substance: PREDNISONE
  3. CODEINE SULFATE. [Concomitant]
     Active Substance: CODEINE SULFATE
  4. PENTASA [Concomitant]
     Active Substance: MESALAMINE
  5. ATENOLOL. [Concomitant]
     Active Substance: ATENOLOL
  6. PROLIA [Concomitant]
     Active Substance: DENOSUMAB
  7. LISINOPRIL. [Concomitant]
     Active Substance: LISINOPRIL
  8. MULTIVITAMINS [Concomitant]
     Active Substance: VITAMINS
  9. CIMZIA [Suspect]
     Active Substance: CERTOLIZUMAB PEGOL
     Indication: SPONDYLOARTHROPATHY
     Dosage: 400 MILLIGRAM, MONTHLY (QM)
     Route: 058

REACTIONS (2)
  - Product quality issue [Unknown]
  - Off label use [Unknown]
